FAERS Safety Report 10193212 (Version 1)
Quarter: 2014Q2

REPORT INFORMATION
  Report Type: Spontaneous
  Country: US (occurrence: US)
  Receive Date: 20140524
  Receipt Date: 20140524
  Transmission Date: 20141212
  Serious: No
  Sender: FDA-Public Use
  Company Number: US-SA-2013SA119940

PATIENT
  Age: 66 Year
  Sex: Female

DRUGS (2)
  1. LANTUS SOLOSTAR [Suspect]
     Indication: TYPE 2 DIABETES MELLITUS
     Dosage: 60U/40 UNITS, TWICE A DAY
     Route: 051
     Dates: start: 2007
  2. SOLOSTAR [Concomitant]
     Dates: start: 2007

REACTIONS (1)
  - Diabetes mellitus inadequate control [Unknown]
